FAERS Safety Report 9782335 (Version 2)
Quarter: 2014Q2

REPORT INFORMATION
  Report Type: Spontaneous
  Country: US (occurrence: US)
  Receive Date: 20131226
  Receipt Date: 20140421
  Transmission Date: 20141212
  Serious: No
  Sender: FDA-Public Use
  Company Number: US-009507513-1312USA008014

PATIENT
  Age: 92 Year
  Sex: Female

DRUGS (3)
  1. FOSAMAX [Suspect]
     Indication: OSTEOPOROSIS
     Dosage: UNK
     Route: 048
  2. TIMOPTIC [Concomitant]
  3. PRILOSEC [Concomitant]
     Route: 048

REACTIONS (6)
  - Jaw fracture [Not Recovered/Not Resolved]
  - Tooth loss [Not Recovered/Not Resolved]
  - Tooth fracture [Unknown]
  - Tooth extraction [Unknown]
  - Dental implantation [Unknown]
  - Oral surgery [Unknown]
